FAERS Safety Report 7041219-3 (Version None)
Quarter: 2010Q4

REPORT INFORMATION
  Report Type: 
  Country: None (occurrence: None)
  Receive Date: 20101013
  Receipt Date: 20101005
  Transmission Date: 20110411
  Serious: Yes (Other)
  Sender: FDA-Public Use
  Company Number: US-SANOFI-AVENTIS-2010SA054149

PATIENT
  Age: 73 Year
  Sex: Male
  Weight: 91.62 kg

DRUGS (10)
  1. MULTAQ [Suspect]
     Indication: ATRIAL FLUTTER
     Route: 048
     Dates: start: 20100528, end: 20100608
  2. MULTAQ [Suspect]
     Indication: ATRIAL FIBRILLATION
     Route: 048
     Dates: start: 20100528, end: 20100608
  3. LIPITOR [Concomitant]
     Dates: start: 20070325
  4. PLAVIX [Concomitant]
     Route: 048
     Dates: start: 20070325
  5. WARFARIN SODIUM [Concomitant]
     Dates: start: 20080101
  6. INSULIN [Concomitant]
  7. INVESTIGATIONAL DRUG [Concomitant]
     Indication: ANTICOAGULANT THERAPY
  8. AVAPRO [Concomitant]
     Indication: BLOOD PRESSURE
  9. JANUVIA [Concomitant]
  10. SYNTHROID [Concomitant]
     Indication: THYROID DISORDER

REACTIONS (3)
  - ATRIAL FLUTTER [None]
  - DIARRHOEA [None]
  - RASH PRURITIC [None]
